FAERS Safety Report 25909139 (Version 1)
Quarter: 2025Q4

REPORT INFORMATION
  Report Type: Spontaneous
  Country: EU (occurrence: EU)
  Receive Date: 20251011
  Receipt Date: 20251011
  Transmission Date: 20260118
  Serious: Yes (Other)
  Sender: CARNEGIE PHARMACEUTICALS LLC
  Company Number: EU-CARNEGIE-000080

PATIENT
  Age: 62 Year
  Sex: Female

DRUGS (1)
  1. LETROZOLE [Suspect]
     Active Substance: LETROZOLE
     Indication: Invasive lobular breast carcinoma
     Route: 065
     Dates: end: 2021

REACTIONS (1)
  - Musculoskeletal toxicity [Unknown]
